FAERS Safety Report 14271554 (Version 1)
Quarter: 2017Q4

REPORT INFORMATION
  Report Type: Spontaneous
  Country: FR (occurrence: FR)
  Receive Date: 20171211
  Receipt Date: 20171211
  Transmission Date: 20180321
  Serious: Yes (Hospitalization, Other)
  Sender: FDA-Public Use
  Company Number: FR-OTSUKA-2016_026645

PATIENT
  Age: 24 Year
  Sex: Female

DRUGS (14)
  1. FLUCONAZOLE BIOGARAN [Concomitant]
     Indication: FUNGAL INFECTION
     Dosage: 1 DF, TID
     Route: 048
     Dates: start: 20160624, end: 20160707
  2. IBUPROFEN. [Concomitant]
     Active Substance: IBUPROFEN
     Indication: FUNGAL INFECTION
     Dosage: 1 DF, TID
     Route: 048
     Dates: start: 20160712
  3. ESOMEPRAZOLE [Concomitant]
     Active Substance: ESOMEPRAZOLE
     Indication: MYALGIA
     Dosage: 1 DF, QD
     Route: 048
     Dates: start: 20160812, end: 20160921
  4. FLUCONAZOLE. [Concomitant]
     Active Substance: FLUCONAZOLE
     Indication: FUNGAL INFECTION
     Dosage: 1 TAB, TID
     Route: 048
     Dates: start: 20160624, end: 20160707
  5. ABILIFY [Suspect]
     Active Substance: ARIPIPRAZOLE
     Indication: PSYCHOTIC DISORDER
     Dosage: 5 MG, QD
     Route: 065
     Dates: start: 20150903
  6. LEPTICUR [Concomitant]
     Active Substance: TROPATEPINE HYDROCHLORIDE
     Indication: EXTRAPYRAMIDAL DISORDER
     Dosage: 1 MG, QD
     Route: 048
     Dates: start: 20160311, end: 20160901
  7. FLUCONAZOLE. [Concomitant]
     Active Substance: FLUCONAZOLE
     Indication: FUNGAL INFECTION
     Dosage: 1 DF, QD
     Route: 048
     Dates: start: 20160805, end: 20160811
  8. ABILIFY [Suspect]
     Active Substance: ARIPIPRAZOLE
     Indication: PRODUCT USED FOR UNKNOWN INDICATION
     Dosage: 10 MG, QD
     Route: 048
     Dates: start: 20150910
  9. IBUPROFEN. [Concomitant]
     Active Substance: IBUPROFEN
     Indication: FUNGAL INFECTION
     Dosage: 1 TAB, TID
     Route: 048
     Dates: start: 20160712
  10. IBUPROFEN. [Concomitant]
     Active Substance: IBUPROFEN
     Indication: MYALGIA
  11. DIPIPERON [Concomitant]
     Active Substance: PIPAMPERONE
     Indication: PSYCHOTIC DISORDER
     Dosage: UNK
     Route: 048
     Dates: start: 20160311, end: 20160908
  12. DOMPERIDONE [Concomitant]
     Active Substance: DOMPERIDONE
     Indication: DYSPHAGIA
     Dosage: 1 DF, UNK
     Route: 048
     Dates: start: 20160812, end: 20160816
  13. ESOMEPRAZOLE [Concomitant]
     Active Substance: ESOMEPRAZOLE
     Indication: MYALGIA
     Dosage: 1 TAB, QD
     Route: 048
     Dates: start: 20160812, end: 20160921
  14. SPIFEN [Concomitant]
     Active Substance: IBUPROFEN
     Indication: MYALGIA
     Dosage: 3 DF, UNK
     Route: 048
     Dates: start: 20160701

REACTIONS (8)
  - Dysphagia [Unknown]
  - Product use in unapproved indication [Recovered/Resolved]
  - Pancreatitis acute [Recovering/Resolving]
  - Hypotension [Recovered/Resolved]
  - Abnormal loss of weight [Not Recovered/Not Resolved]
  - General physical health deterioration [Unknown]
  - Decreased appetite [Unknown]
  - Hepatitis acute [Recovered/Resolved]

NARRATIVE: CASE EVENT DATE: 20160908
